FAERS Safety Report 8787932 (Version 2)
Quarter: 2013Q1

REPORT INFORMATION
  Report Type: Spontaneous
  Country: GB (occurrence: GB)
  Receive Date: 20120914
  Receipt Date: 20130312
  Transmission Date: 20140127
  Serious: Yes (Other)
  Sender: FDA-Public Use
  Company Number: CHPA2012GB019620

PATIENT
  Sex: 0

DRUGS (1)
  1. SCOPODERM TTS [Suspect]
     Dosage: UNK, UNK
     Route: 062

REACTIONS (1)
  - Anticholinergic syndrome [Unknown]
